FAERS Safety Report 5015163-7 (Version None)
Quarter: 2006Q2

REPORT INFORMATION
  Report Type: 
  Country: None (occurrence: None)
  Receive Date: 20060530
  Receipt Date: 20060512
  Transmission Date: 20061013
  Serious: Yes (Hospitalization)
  Sender: FDA-Public Use
  Company Number: MEDI-0003087

PATIENT
  Age: 9 Month
  Sex: Male

DRUGS (6)
  1. SYNAGIS [Suspect]
     Indication: ANTIVIRAL PROPHYLAXIS
     Dosage: SEE IMAGE
     Route: 030
     Dates: start: 20031218, end: 20040217
  2. SYNAGIS [Suspect]
     Indication: ANTIVIRAL PROPHYLAXIS
     Dosage: SEE IMAGE
     Route: 030
     Dates: start: 20031218
  3. SYNAGIS [Suspect]
     Indication: ANTIVIRAL PROPHYLAXIS
     Dosage: SEE IMAGE
     Route: 030
     Dates: start: 20040121
  4. ALFACALCIDOL         (ALFACALCIDOL) [Concomitant]
  5. FERRIC PYROPHOSPHATE   (FERRIC PYROPHOSPHATE) [Concomitant]
  6. EPOETIN ALFA        (EPOETIN ALFA) [Concomitant]

REACTIONS (2)
  - ASTHMA [None]
  - STRIDOR [None]
